FAERS Safety Report 7716647-0 (Version None)
Quarter: 2011Q3

REPORT INFORMATION
  Report Type: 
  Country: None (occurrence: None)
  Receive Date: 20110829
  Receipt Date: 20110818
  Transmission Date: 20111222
  Serious: Yes (Hospitalization)
  Sender: FDA-Public Use
  Company Number: US-ELI_LILLY_AND_COMPANY-US201108006402

PATIENT
  Age: 64 Year
  Sex: Female

DRUGS (3)
  1. HUMULIN R [Suspect]
     Indication: DIABETES MELLITUS
     Dosage: UNK, UNKNOWN
     Route: 065
  2. HUMULIN N [Suspect]
     Indication: DIABETES MELLITUS
     Dosage: 50 U, BID
     Route: 065
  3. HUMULIN N [Suspect]
     Dosage: 50 U, BID
     Route: 065

REACTIONS (5)
  - VOMITING [None]
  - CATARACT [None]
  - NAUSEA [None]
  - MALAISE [None]
  - HYPERSENSITIVITY [None]
